FAERS Safety Report 8129230-2 (Version None)
Quarter: 2012Q1

REPORT INFORMATION
  Report Type: 
  Country: None (occurrence: None)
  Receive Date: 20120210
  Receipt Date: 20120207
  Transmission Date: 20120608
  Serious: Yes (Death, Other)
  Sender: FDA-Public Use
  Company Number: US-BAYER-2012-000665

PATIENT
  Sex: Male

DRUGS (1)
  1. BETASERON [Suspect]
     Indication: MULTIPLE SCLEROSIS

REACTIONS (7)
  - PELVIC FRACTURE [None]
  - HIP FRACTURE [None]
  - ABDOMINAL DISTENSION [None]
  - MALAISE [None]
  - LARGE INTESTINE PERFORATION [None]
  - FALL [None]
  - CARDIO-RESPIRATORY ARREST [None]
